FAERS Safety Report 5859337-1 (Version None)
Quarter: 2008Q3

REPORT INFORMATION
  Report Type: 
  Country: None (occurrence: None)
  Receive Date: 20080827
  Receipt Date: 20080819
  Transmission Date: 20090109
  Serious: Yes (Hospitalization)
  Sender: FDA-Public Use
  Company Number: DE-BAYER-200822252GPV

PATIENT
  Age: 73 Year
  Sex: Male
  Weight: 85 kg

DRUGS (2)
  1. SORAFENIB [Suspect]
     Indication: MALIGNANT MELANOMA
     Route: 048
     Dates: start: 20080604, end: 20080717
  2. PEG-INTRON [Suspect]
     Indication: MALIGNANT MELANOMA
     Route: 042
     Dates: start: 20080604, end: 20080703

REACTIONS (4)
  - ARRHYTHMIA [None]
  - ARRHYTHMIA SUPRAVENTRICULAR [None]
  - ATRIAL FIBRILLATION [None]
  - NODAL ARRHYTHMIA [None]
